FAERS Safety Report 4317509-1 (Version None)
Quarter: 2004Q1

REPORT INFORMATION
  Report Type: 
  Country: None (occurrence: None)
  Receive Date: 20040312
  Receipt Date: 20040304
  Transmission Date: 20041129
  Serious: Yes (Hospitalization)
  Sender: FDA-Public Use
  Company Number: US-JNJFOC-20040301628

PATIENT
  Age: 50 Year
  Sex: Female

DRUGS (3)
  1. HALDOL [Suspect]
     Dosage: SEE IMAGE
     Dates: start: 20031021
  2. HALDOL [Suspect]
     Dosage: SEE IMAGE
     Dates: start: 20040129
  3. RISPERDAL [Concomitant]

REACTIONS (1)
  - DELUSION [None]
